FAERS Safety Report 17143677 (Version 3)
Quarter: 2020Q1

REPORT INFORMATION
  Report Type: Spontaneous
  Country: US (occurrence: US)
  Receive Date: 20191212
  Receipt Date: 20200108
  Transmission Date: 20200409
  Serious: No
  Sender: FDA-Public Use
  Company Number: US-PFIZER INC-2019535496

PATIENT
  Age: 76 Year
  Sex: Female
  Weight: 59 kg

DRUGS (2)
  1. PREMPRO [Suspect]
     Active Substance: ESTROGENS, CONJUGATED\MEDROXYPROGESTERONE ACETATE
     Indication: HOT FLUSH
     Dosage: UNK UNK, DAILY (LOW DOSE OF 0.3MG/1.5MG DAILY BY MOUTH)
     Route: 048
  2. PREMPRO [Suspect]
     Active Substance: ESTROGENS, CONJUGATED\MEDROXYPROGESTERONE ACETATE
     Indication: UTERINE LEIOMYOMA
     Dosage: 1 DF, DAILY (TAKE 1 TABLET BY ORAL ROUTE EVERYDAY)
     Route: 048

REACTIONS (2)
  - Uterine leiomyoma [Unknown]
  - Condition aggravated [Unknown]
